FAERS Safety Report 26126372 (Version 1)
Quarter: 2025Q4

REPORT INFORMATION
  Report Type: Spontaneous
  Country: CN (occurrence: CN)
  Receive Date: 20251205
  Receipt Date: 20251205
  Transmission Date: 20260117
  Serious: Yes (Other)
  Sender: BAXTER
  Company Number: None

PATIENT
  Age: 50 Year
  Sex: Male

DRUGS (6)
  1. CYCLOPHOSPHAMIDE [Suspect]
     Active Substance: CYCLOPHOSPHAMIDE
     Indication: Plasma cell myeloma
     Dosage: 400 MG, QD (WITH 0.9% SODIUM CHLORIDE INJECTION 250 ML), IVGTT, ONCE
     Route: 041
     Dates: start: 20250204, end: 20250204
  2. SODIUM CHLORIDE [Suspect]
     Active Substance: SODIUM CHLORIDE
     Dosage: 250 ML, QD (INJECTION), WITH CYCLOPHOSPHAMIDE
     Route: 041
     Dates: start: 20250204, end: 20250204
  3. BORTEZOMIB [Suspect]
     Active Substance: BORTEZOMIB
     Indication: Plasma cell myeloma
     Dosage: 2.5 MG, QD (ONCE)
     Route: 058
     Dates: start: 20250204, end: 20250204
  4. DARATUMUMAB [Suspect]
     Active Substance: DARATUMUMAB
     Indication: Plasma cell myeloma
     Dosage: 1000 MG, QD (WITH 0.9% SODIUM CHLORIDE INJECTION 500 ML), IVGTT, ONCE
     Route: 041
     Dates: start: 20250204, end: 20250204
  5. SODIUM CHLORIDE [Suspect]
     Active Substance: SODIUM CHLORIDE
     Indication: Medication dilution
     Dosage: 500 ML, QD WITH DARATUMUMAB
     Route: 041
     Dates: start: 20250204, end: 20250204
  6. DEXTROSE [Suspect]
     Active Substance: DEXTROSE MONOHYDRATE
     Indication: Medication dilution
     Dosage: 250 ML, QD
     Route: 041
     Dates: start: 20250204, end: 20250204

REACTIONS (1)
  - Myelosuppression [Recovering/Resolving]

NARRATIVE: CASE EVENT DATE: 20250211
